FAERS Safety Report 7915192-7 (Version None)
Quarter: 2011Q4

REPORT INFORMATION
  Report Type: 
  Country: None (occurrence: None)
  Receive Date: 20111115
  Receipt Date: 20111115
  Transmission Date: 20120403
  Serious: Yes (Other)
  Sender: FDA-Public Use
  Company Number: GB-PFIZER INC-2008004347

PATIENT
  Age: 45 Year
  Sex: Male
  Weight: 92 kg

DRUGS (3)
  1. SOMATROPIN [Suspect]
     Indication: HYPOPITUITARISM
     Dosage: 0.2 MG, 1X/DAY
     Route: 058
     Dates: start: 20070209
  2. TESTOSTERONE [Concomitant]
     Dosage: 1000 MG, UNK
     Route: 058
  3. DDAVP [Concomitant]
     Dosage: 200 UG, UNK
     Route: 045
     Dates: start: 20061002

REACTIONS (2)
  - CRANIOPHARYNGIOMA [None]
  - NEOPLASM PROGRESSION [None]
